FAERS Safety Report 9275225 (Version 1)
Quarter: 2013Q2

REPORT INFORMATION
  Report Type: Spontaneous
  Country: US (occurrence: None)
  Receive Date: 20130501
  Receipt Date: 20130501
  Transmission Date: 20140414
  Serious: Yes (Hospitalization)
  Sender: FDA-Public Use
  Company Number: None

PATIENT
  Age: 14 Year
  Sex: Male
  Weight: 93.3 kg

DRUGS (1)
  1. OMALIZUMAB [Suspect]
     Indication: ASTHMA
     Dosage: Q 2 WEEKS
     Route: 058

REACTIONS (5)
  - Pyrexia [None]
  - Abdominal pain [None]
  - Nausea [None]
  - Retching [None]
  - Pyelonephritis [None]
